FAERS Safety Report 9834196 (Version 1)
Quarter: 2014Q1

REPORT INFORMATION
  Report Type: Not Available
  Country: GB (occurrence: GB)
  Receive Date: 20140122
  Receipt Date: 20140122
  Transmission Date: 20141002
  Serious: Yes (Hospitalization, Other)
  Sender: FDA-Public Use
  Company Number: GB-ASTELLAS-2014EU000318

PATIENT
  Age: 70 Year
  Sex: Male
  Weight: 99 kg

DRUGS (11)
  1. XTANDI [Suspect]
     Indication: PROSTATE CANCER
     Dosage: 160 MG, UID/QD
     Route: 048
     Dates: start: 20131219, end: 20131231
  2. AZATHIOPRINE [Concomitant]
     Dosage: UNK
     Route: 065
  3. CO-DANTHRAMER [Concomitant]
     Dosage: UNK
     Route: 065
  4. DEXAMETHASONE [Concomitant]
     Dosage: UNK
     Route: 065
  5. FUROSEMIDE [Concomitant]
     Dosage: UNK
     Route: 065
  6. GABAPENTIN [Concomitant]
     Dosage: UNK
     Route: 065
  7. LANSOPRAZOLE [Concomitant]
     Dosage: UNK
     Route: 065
  8. OXYCODONE [Concomitant]
     Dosage: UNK
     Route: 065
  9. TACROLIMUS SYSTEMIC [Concomitant]
     Dosage: UNK
     Route: 065
  10. TRAZODONE [Concomitant]
     Dosage: UNK
     Route: 065
  11. ZOPICLONE [Concomitant]
     Dosage: UNK
     Route: 065

REACTIONS (2)
  - Toxicity to various agents [Recovered/Resolved with Sequelae]
  - Rash [Not Recovered/Not Resolved]
